FAERS Safety Report 15802125 (Version 1)
Quarter: 2019Q1

REPORT INFORMATION
  Report Type: Spontaneous
  Country: US (occurrence: US)
  Receive Date: 20190103
  Receipt Date: 20190103
  Transmission Date: 20190417
  Serious: No
  Sender: FDA-Public Use
  Company Number: None

PATIENT

DRUGS (3)
  1. STERILE WATER FOR INJECTION [Suspect]
     Active Substance: WATER
  2. STERILE WATER FOR IRRIGATION [Suspect]
     Active Substance: WATER
  3. VANCOMYCIN [Suspect]
     Active Substance: VANCOMYCIN

REACTIONS (3)
  - Product appearance confusion [None]
  - Product preparation error [None]
  - Intercepted product preparation error [None]
